FAERS Safety Report 14207900 (Version 1)
Quarter: 2017Q4

REPORT INFORMATION
  Report Type: Spontaneous
  Country: US (occurrence: US)
  Receive Date: 20171120
  Receipt Date: 20171120
  Transmission Date: 20180321
  Serious: No
  Sender: FDA-Public Use
  Company Number: None

PATIENT
  Age: 62 Year
  Sex: Female

DRUGS (6)
  1. ZYRTEC [Concomitant]
     Active Substance: CETIRIZINE HYDROCHLORIDE
  2. TYLENOL EXTRA STRENGTH [Concomitant]
     Active Substance: ACETAMINOPHEN
  3. ALKASELTZER [Concomitant]
  4. DECONGESTANT [Concomitant]
     Active Substance: UNSPECIFIED INGREDIENT
  5. 2% CHLORHEXIDINE GLUCONATE CLOTH PACKAGE [Suspect]
     Active Substance: CHLORHEXIDINE GLUCONATE
     Indication: PREOPERATIVE CARE
     Dates: start: 20171119, end: 20171119
  6. 2% CHLORHEXIDINE GLUCONATE CLOTH PACKAGE [Suspect]
     Active Substance: CHLORHEXIDINE GLUCONATE
     Indication: ANTI-INFECTIVE THERAPY
     Dates: start: 20171119, end: 20171119

REACTIONS (4)
  - Insomnia [None]
  - Pruritus [None]
  - Sensory disturbance [None]
  - Skin burning sensation [None]

NARRATIVE: CASE EVENT DATE: 20171119
